FAERS Safety Report 8832446 (Version 1)
Quarter: 2012Q4

REPORT INFORMATION
  Report Type: Spontaneous
  Country: DE (occurrence: None)
  Receive Date: 20121005
  Receipt Date: 20121005
  Transmission Date: 20130627
  Serious: Yes (Death, Other)
  Sender: FDA-Public Use
  Company Number: AUR-APL-2012-04263

PATIENT
  Sex: Female

DRUGS (9)
  1. OLANZAPINE [Suspect]
     Indication: OBSESSIVE-COMPULSIVE DISORDER
     Dosage: 27- 35 gestational week
(1d)
     Route: 064
  2. VENLAFAXINE [Suspect]
     Indication: DEPRESSION
     Dosage: (1 D)
     Route: 064
  3. VENLAFAXINE [Suspect]
     Indication: DEPRESSION
     Dosage: (1 D)
  4. QUILONUM [Suspect]
     Indication: OBSESSIVE-COMPULSIVE DISORDER
     Dosage: (1 D)
     Route: 064
  5. QUILONUM [Suspect]
     Indication: OBSESSIVE-COMPULSIVE DISORDER
     Dosage: (1D)
     Route: 064
  6. QUILONUM [Suspect]
     Indication: OBSESSIVE-COMPULSIVE DISORDER
     Dosage: (1 D)
     Route: 064
  7. QUILONUM [Suspect]
     Indication: OBSESSIVE-COMPULSIVE DISORDER
     Dosage: (1D)
     Route: 064
  8. SERTRALIN (SERTRALINE) [Concomitant]
  9. FOLSAURE (FOLIC ACID) [Concomitant]

REACTIONS (3)
  - Maternal drugs affecting foetus [None]
  - Placental disorder [None]
  - Foetal death [None]
